FAERS Safety Report 7541938-6 (Version None)
Quarter: 2011Q2

REPORT INFORMATION
  Report Type: 
  Country: None (occurrence: None)
  Receive Date: 20110524
  Receipt Date: 20110325
  Transmission Date: 20111010
  Serious: No
  Sender: FDA-Public Use
  Company Number: 030005

PATIENT
  Age: 40 Year
  Sex: Female

DRUGS (1)
  1. CIMZIA [Suspect]
     Dosage: (400 MG 1X/4 WEEKS SUBCUTANEOUS)
     Route: 058

REACTIONS (7)
  - COUGH [None]
  - BURNING SENSATION [None]
  - INJECTION SITE HAEMATOMA [None]
  - SINUS HEADACHE [None]
  - LYMPHADENOPATHY [None]
  - INJECTION SITE MASS [None]
  - OROPHARYNGEAL PAIN [None]
